FAERS Safety Report 18067652 (Version 1)
Quarter: 2020Q3

REPORT INFORMATION
  Report Type: Spontaneous
  Country: US (occurrence: US)
  Receive Date: 20200724
  Receipt Date: 20200724
  Transmission Date: 20201103
  Serious: No
  Sender: FDA-Public Use
  Company Number: US-SA-2020SA189428

PATIENT

DRUGS (1)
  1. LANTUS SOLOSTAR [Suspect]
     Active Substance: INSULIN GLARGINE
     Indication: TYPE 2 DIABETES MELLITUS
     Dosage: 8 UNITS,TWICE A DAY
     Route: 065

REACTIONS (8)
  - Blood glucose increased [Unknown]
  - Circumstance or information capable of leading to medication error [Unknown]
  - Device operational issue [Unknown]
  - Device leakage [Unknown]
  - Tremor [Unknown]
  - Wrong technique in device usage process [Unknown]
  - Inappropriate schedule of product administration [Unknown]
  - Memory impairment [Unknown]
